FAERS Safety Report 10151707 (Version 1)
Quarter: 2014Q2

REPORT INFORMATION
  Report Type: Spontaneous
  Country: DE (occurrence: DE)
  Receive Date: 20140505
  Receipt Date: 20140505
  Transmission Date: 20141212
  Serious: Yes (Other)
  Sender: FDA-Public Use
  Company Number: DE-BIOGENIDEC-2013BI109764

PATIENT
  Age: 33 Year
  Sex: Female

DRUGS (2)
  1. AVONEX [Suspect]
     Indication: MULTIPLE SCLEROSIS
     Route: 030
     Dates: start: 20071001, end: 201304
  2. CETIRIZINE [Concomitant]
     Indication: MULTIPLE ALLERGIES
     Dates: start: 1992

REACTIONS (1)
  - Foetal malposition [Unknown]
